FAERS Safety Report 6554422-3 (Version None)
Quarter: 2010Q1

REPORT INFORMATION
  Report Type: 
  Country: None (occurrence: None)
  Receive Date: 20100127
  Receipt Date: 20100125
  Transmission Date: 20100710
  Serious: Yes (Life-Threatening, Hospitalization)
  Sender: FDA-Public Use
  Company Number: GXKR2010DE01073

PATIENT
  Age: 68 Year
  Sex: Female
  Weight: 58 kg

DRUGS (2)
  1. CARBOPLATIN (NGX) [Suspect]
     Indication: OVARIAN CANCER
     Dosage: 450 MG, QD
     Route: 042
     Dates: start: 20091116
  2. NEOTAXAN [Concomitant]

REACTIONS (1)
  - ARTERIOSPASM CORONARY [None]
